FAERS Safety Report 23162155 (Version 2)
Quarter: 2023Q4

REPORT INFORMATION
  Report Type: Spontaneous
  Country: US (occurrence: US)
  Receive Date: 20231109
  Receipt Date: 20231123
  Transmission Date: 20240109
  Serious: Yes (Other)
  Sender: FDA-Public Use
  Company Number: US-TEVA-2023-US-2942727

PATIENT
  Sex: Male

DRUGS (1)
  1. ISOTRETINOIN [Suspect]
     Active Substance: ISOTRETINOIN
     Indication: Hidradenitis
     Dosage: RECEIVED 20 TO 40 MG DAILY
     Route: 065

REACTIONS (4)
  - Xerosis [Unknown]
  - Lip dry [Unknown]
  - Blepharitis [Unknown]
  - Cheilitis [Unknown]
